FAERS Safety Report 21840991 (Version 3)
Quarter: 2025Q1

REPORT INFORMATION
  Report Type: Report from Study
  Country: US (occurrence: US)
  Receive Date: 20230110
  Receipt Date: 20250212
  Transmission Date: 20250409
  Serious: Yes (Other)
  Sender: TAKEDA
  Company Number: US-TAKEDA-2023TUS002612

PATIENT
  Age: 22 Year
  Sex: Male
  Weight: 50.34 kg

DRUGS (2)
  1. RECOMBINATE [Suspect]
     Active Substance: ANTIHEMOPHILIC FACTOR, HUMAN RECOMBINANT
     Indication: Factor VIII deficiency
  2. RECOMBINATE [Suspect]
     Active Substance: ANTIHEMOPHILIC FACTOR, HUMAN RECOMBINANT
     Dosage: UNK, UNK, 3/WEEK

REACTIONS (4)
  - Gingival bleeding [Recovered/Resolved]
  - Product lot number issue [Unknown]
  - Product label issue [Unknown]
  - Product storage error [Unknown]

NARRATIVE: CASE EVENT DATE: 20230815
